FAERS Safety Report 13631127 (Version 1)
Quarter: 2017Q2

REPORT INFORMATION
  Report Type: Spontaneous
  Country: US (occurrence: US)
  Receive Date: 20170531
  Receipt Date: 20170531
  Transmission Date: 20170830
  Serious: No
  Sender: FDA-Public Use
  Company Number: US-ASTELLAS-1353503

PATIENT
  Sex: Female

DRUGS (1)
  1. TARCEVA [Suspect]
     Active Substance: ERLOTINIB HYDROCHLORIDE
     Indication: LUNG CARCINOMA CELL TYPE UNSPECIFIED STAGE IV
     Route: 065
     Dates: start: 20130101, end: 20130301

REACTIONS (3)
  - Dermatitis acneiform [Unknown]
  - Decreased appetite [Unknown]
  - Alopecia [Unknown]
